FAERS Safety Report 24157912 (Version 2)
Quarter: 2024Q3

REPORT INFORMATION
  Report Type: Spontaneous
  Country: US (occurrence: US)
  Receive Date: 20240731
  Receipt Date: 20240809
  Transmission Date: 20241017
  Serious: Yes (Hospitalization, Other)
  Sender: MERCK
  Company Number: US-009507513-2407USA013320

PATIENT
  Age: 87 Year
  Sex: Male
  Weight: 130 kg

DRUGS (3)
  1. KEYTRUDA [Suspect]
     Active Substance: PEMBROLIZUMAB
     Indication: Metastatic malignant melanoma
     Dosage: 200 MILLIGRAM, Q3W
     Dates: start: 20240625, end: 20240625
  2. KEYTRUDA [Suspect]
     Active Substance: PEMBROLIZUMAB
     Dosage: 200 MILLIGRAM, Q3W
     Dates: start: 20240713, end: 20240725
  3. LATANOPROST [Suspect]
     Active Substance: LATANOPROST
     Indication: Glaucoma
     Dosage: DROP
     Route: 047

REACTIONS (17)
  - Malignant neoplasm progression [Unknown]
  - Diabetic ketoacidosis [Recovered/Resolved]
  - Type 1 diabetes mellitus [Not Recovered/Not Resolved]
  - Immature granulocyte percentage increased [Unknown]
  - Monocyte percentage increased [Unknown]
  - Scoliosis [Unknown]
  - Lymphocyte percentage decreased [Unknown]
  - Glomerular filtration rate decreased [Unknown]
  - Lymphocyte count decreased [Unknown]
  - Dehydration [Not Recovered/Not Resolved]
  - Hypomagnesaemia [Unknown]
  - Oropharyngeal pain [Not Recovered/Not Resolved]
  - Oedema peripheral [Recovering/Resolving]
  - Blood calcium decreased [Unknown]
  - Dry eye [Not Recovered/Not Resolved]
  - Anaemia [Unknown]
  - Constipation [Unknown]

NARRATIVE: CASE EVENT DATE: 20240701
